FAERS Safety Report 23884355 (Version 1)
Quarter: 2024Q2

REPORT INFORMATION
  Report Type: Spontaneous
  Country: US (occurrence: None)
  Receive Date: 20240522
  Receipt Date: 20240522
  Transmission Date: 20240716
  Serious: Yes (Hospitalization)
  Sender: FDA-Public Use
  Company Number: None

PATIENT
  Sex: Female
  Weight: 306 kg

DRUGS (3)
  1. CYTARABINE [Suspect]
     Active Substance: CYTARABINE
  2. SPRYCEL [Suspect]
     Active Substance: DASATINIB
  3. METHOTREXATE [Suspect]
     Active Substance: METHOTREXATE

REACTIONS (8)
  - Malaise [None]
  - Pyrexia [None]
  - Oropharyngeal pain [None]
  - Throat irritation [None]
  - Dyspnoea exertional [None]
  - Herpes simplex [None]
  - Fatigue [None]
  - Blood culture positive [None]

NARRATIVE: CASE EVENT DATE: 20230511
